FAERS Safety Report 21475903 (Version 1)
Quarter: 2022Q4

REPORT INFORMATION
  Report Type: Report from Study
  Country: US (occurrence: US)
  Receive Date: 20221019
  Receipt Date: 20221019
  Transmission Date: 20230113
  Serious: Yes (Death)
  Sender: FDA-Public Use
  Company Number: US-HBP-2022US027583

PATIENT
  Age: 72 Year
  Sex: Male

DRUGS (1)
  1. TRUSELTIQ [Suspect]
     Active Substance: INFIGRATINIB
     Indication: Cholangiocarcinoma
     Dosage: 100 MILLIGRAM, ONCE DAILY FOR 21 DAYS
     Route: 048
     Dates: start: 202209, end: 20220922

REACTIONS (3)
  - Death [Fatal]
  - Incorrect dosage administered [Unknown]
  - Therapy cessation [Unknown]

NARRATIVE: CASE EVENT DATE: 20220901
